FAERS Safety Report 5488036-3 (Version None)
Quarter: 2007Q4

REPORT INFORMATION
  Report Type: 
  Country: None (occurrence: None)
  Receive Date: 20071017
  Receipt Date: 20071015
  Transmission Date: 20080405
  Serious: Yes (Death)
  Sender: FDA-Public Use
  Company Number: US-JNJFOC-20070900903

PATIENT
  Sex: Male
  Weight: 83.46 kg

DRUGS (6)
  1. RAZADYNE [Suspect]
     Indication: DEMENTIA
     Route: 048
  2. ARICEPT [Concomitant]
     Indication: DEMENTIA
  3. LIPITOR [Concomitant]
     Indication: BLOOD CHOLESTEROL
  4. PLAVIX [Concomitant]
     Indication: CEREBROVASCULAR ACCIDENT
  5. CARBATROL [Concomitant]
     Indication: NEUROPATHY PERIPHERAL
  6. ACIPHEX [Concomitant]
     Indication: GASTROOESOPHAGEAL REFLUX DISEASE

REACTIONS (2)
  - DEATH [None]
  - HEAD INJURY [None]
